FAERS Safety Report 11094845 (Version 2)
Quarter: 2015Q2

REPORT INFORMATION
  Report Type: Spontaneous
  Country: US (occurrence: US)
  Receive Date: 20150506
  Receipt Date: 20150616
  Transmission Date: 20150821
  Serious: Yes (Death)
  Sender: FDA-Public Use
  Company Number: US-CELGENE-USA-2015034053

PATIENT
  Age: 15 Year
  Sex: Female

DRUGS (1)
  1. THALOMID [Suspect]
     Active Substance: THALIDOMIDE
     Indication: LYMPHOMA
     Route: 048
     Dates: start: 20150116

REACTIONS (2)
  - Cardiopulmonary failure [Fatal]
  - Lymphoma [Fatal]

NARRATIVE: CASE EVENT DATE: 20150227
